FAERS Safety Report 9393264 (Version 1)
Quarter: 2013Q3

REPORT INFORMATION
  Report Type: Spontaneous
  Country: US (occurrence: US)
  Receive Date: 20130710
  Receipt Date: 20130710
  Transmission Date: 20140515
  Serious: Yes (Other)
  Sender: FDA-Public Use
  Company Number: US-RB-055589-13

PATIENT
  Age: 61 Year
  Sex: Female

DRUGS (9)
  1. MUCINEX FAST-MAX COLD AND SINUS [Suspect]
     Indication: PRODUCT USED FOR UNKNOWN INDICATION
     Dosage: DRUG STOPPED ON 19-JUN-2013. 2 CAPLETS(1 DOSE)
     Route: 048
     Dates: start: 20130619
  2. MUCINEX FAST MAX ADULT COLD + SINUS [Suspect]
  3. MUCINEX FAST MAX ADULT COLD + SINUS [Suspect]
  4. LORTAB [Concomitant]
     Indication: PRODUCT USED FOR UNKNOWN INDICATION
  5. HYDROXYCHLOROQUINE [Concomitant]
     Indication: PRODUCT USED FOR UNKNOWN INDICATION
  6. ZANAFLEX [Concomitant]
     Indication: PRODUCT USED FOR UNKNOWN INDICATION
  7. SINGULAIR [Concomitant]
     Indication: PRODUCT USED FOR UNKNOWN INDICATION
  8. ZESTRIL [Concomitant]
     Indication: PRODUCT USED FOR UNKNOWN INDICATION
  9. XANAX [Concomitant]
     Indication: PRODUCT USED FOR UNKNOWN INDICATION

REACTIONS (4)
  - Convulsion [Recovered/Resolved]
  - Muscle spasms [Recovered/Resolved]
  - Swelling [Recovered/Resolved]
  - Tongue biting [Recovered/Resolved]
